FAERS Safety Report 9411673 (Version 4)
Quarter: 2014Q1

REPORT INFORMATION
  Report Type: Spontaneous
  Country: US (occurrence: US)
  Receive Date: 20130722
  Receipt Date: 20140205
  Transmission Date: 20141002
  Serious: Yes (Hospitalization, Other)
  Sender: FDA-Public Use
  Company Number: US-BAYER-2013-084350

PATIENT
  Age: 35 Year
  Sex: Female
  Weight: 61.22 kg

DRUGS (3)
  1. MIRENA [Suspect]
     Indication: CONTRACEPTION
     Dosage: 20 MCG/24HR, CONT
     Route: 015
     Dates: start: 20100428, end: 20110803
  2. SERTRALINE [Concomitant]
  3. KLONOPIN [Concomitant]

REACTIONS (9)
  - Uterine perforation [None]
  - Injury [None]
  - Pain [None]
  - Pelvic mass [None]
  - Emotional distress [None]
  - Device dislocation [None]
  - Ovarian cyst [None]
  - Appendicitis [None]
  - Device related infection [None]
